FAERS Safety Report 6864001-6 (Version None)
Quarter: 2010Q3

REPORT INFORMATION
  Report Type: 
  Country: None (occurrence: None)
  Receive Date: 20100721
  Receipt Date: 20080314
  Transmission Date: 20110219
  Serious: No
  Sender: FDA-Public Use
  Company Number: US-PFIZER INC-2008023904

PATIENT
  Sex: Female
  Weight: 68 kg

DRUGS (5)
  1. CHANTIX [Suspect]
     Indication: SMOKING CESSATION THERAPY
     Route: 048
     Dates: start: 20080306, end: 20080314
  2. ALL OTHER THERAPEUTIC PRODUCTS [Concomitant]
     Indication: MICTURITION URGENCY
  3. FISH OIL [Concomitant]
  4. VITAMINS [Concomitant]
  5. ETODOLAC [Concomitant]
     Indication: CARPAL TUNNEL SYNDROME
     Dates: start: 20080301

REACTIONS (2)
  - DEPRESSION [None]
  - DRUG DOSE OMISSION [None]
